FAERS Safety Report 11744361 (Version 4)
Quarter: 2016Q1

REPORT INFORMATION
  Report Type: Spontaneous
  Country: BR (occurrence: BR)
  Receive Date: 20151116
  Receipt Date: 20160113
  Transmission Date: 20160525
  Serious: Yes (Hospitalization, Other)
  Sender: FDA-Public Use
  Company Number: BR-ABBVIE-15P-020-1500905-00

PATIENT
  Age: 52 Year
  Sex: Male
  Weight: 60 kg

DRUGS (5)
  1. LAMOTRIGINE. [Concomitant]
     Active Substance: LAMOTRIGINE
     Indication: DRUG THERAPY ENHANCEMENT
     Dates: start: 201503
  2. DEPAKOTE [Suspect]
     Active Substance: DIVALPROEX SODIUM
     Indication: PRODUCT USED FOR UNKNOWN INDICATION
     Dosage: 10 AM AND 11 PM; DAILY DOSE: 1000MG
     Route: 048
  3. DEPAKENE [Suspect]
     Active Substance: VALPROIC ACID
     Indication: SEIZURE
     Dosage: ROUTE OF ADMINISTRATION: NASOGASTRIC CATHETER
     Route: 065
     Dates: start: 201501
  4. DEPAKOTE ER [Suspect]
     Active Substance: DIVALPROEX SODIUM
     Indication: SEIZURE
     Dosage: ROUTE OF ADMINISTRATION: NASOGASTRIC CATHETER
     Route: 065
     Dates: start: 201503
  5. SIMVASTATIN. [Concomitant]
     Active Substance: SIMVASTATIN
     Indication: BLOOD CHOLESTEROL ABNORMAL
     Dosage: ADMINISTRATION OF HALF TABLET VIA NASOGASTRIC CATHETER
     Dates: start: 201503

REACTIONS (17)
  - Urinary tract infection [Recovered/Resolved]
  - Seizure [Recovering/Resolving]
  - Sepsis [Recovered/Resolved]
  - Drug hypersensitivity [Unknown]
  - Wrong technique in product usage process [Not Recovered/Not Resolved]
  - Bedridden [Not Recovered/Not Resolved]
  - Body temperature decreased [Recovered/Resolved]
  - Decubitus ulcer [Recovering/Resolving]
  - Malaise [Recovered/Resolved]
  - Pneumonia [Recovered/Resolved]
  - Depressed mood [Recovered/Resolved]
  - Asthenia [Recovered/Resolved]
  - Cerebrovascular accident [Recovered/Resolved]
  - Drug ineffective [Recovered/Resolved]
  - Hyperhidrosis [Recovered/Resolved]
  - Urinary tract infection [Unknown]
  - Drug prescribing error [Unknown]

NARRATIVE: CASE EVENT DATE: 2015
